FAERS Safety Report 5010612-2 (Version None)
Quarter: 2006Q2

REPORT INFORMATION
  Report Type: 
  Country: None (occurrence: None)
  Receive Date: 20060524
  Receipt Date: 20060524
  Transmission Date: 20061013
  Serious: Yes (Hospitalization)
  Sender: FDA-Public Use
  Company Number: None

PATIENT
  Age: 61 Year
  Sex: Female
  Weight: 55.3388 kg

DRUGS (10)
  1. PACLITAXEL [Suspect]
     Indication: LARYNGEAL CANCER RECURRENT
     Dosage: 31.80MG  IV DAILY X5
     Route: 042
     Dates: start: 20060515, end: 20060519
  2. CISPLATIN [Suspect]
     Dosage: 23.85MG  IV  DAILY X5
     Route: 042
     Dates: start: 20060515, end: 20060519
  3. REGLAN [Concomitant]
  4. SALAGEN [Concomitant]
  5. PRILOSEC [Concomitant]
  6. AMBIEN [Concomitant]
  7. ATIVAN [Concomitant]
  8. BENADRYL [Concomitant]
  9. OXYCODONE [Concomitant]
  10. SENNA-S [Concomitant]

REACTIONS (3)
  - DEHYDRATION [None]
  - NAUSEA [None]
  - VOMITING [None]
